FAERS Safety Report 18010936 (Version 4)
Quarter: 2025Q3

REPORT INFORMATION
  Report Type: Report from Study
  Country: BR (occurrence: BR)
  Receive Date: 20200710
  Receipt Date: 20250703
  Transmission Date: 20251020
  Serious: Yes (Other)
  Sender: NOVARTIS
  Company Number: PHHY2019BR220498

PATIENT
  Age: 51 Year
  Sex: Female

DRUGS (6)
  1. COSENTYX [Suspect]
     Active Substance: SECUKINUMAB
     Indication: Psoriatic arthropathy
     Dosage: 2 DF, QW (ONE DOSAGE PER WEEK ON THURSDAY IN INITIAL DOSE AND ONCE A MONTHLY)
     Route: 065
     Dates: start: 20190830
  2. COSENTYX [Suspect]
     Active Substance: SECUKINUMAB
     Indication: Spondylitis
     Route: 065
     Dates: start: 20191105
  3. COSENTYX [Suspect]
     Active Substance: SECUKINUMAB
     Route: 065
     Dates: start: 20191205
  4. COSENTYX [Suspect]
     Active Substance: SECUKINUMAB
     Route: 065
  5. COSENTYX [Suspect]
     Active Substance: SECUKINUMAB
     Route: 065
     Dates: start: 20211221
  6. AZITHROMYCIN [Suspect]
     Active Substance: AZITHROMYCIN
     Indication: Product used for unknown indication
     Route: 065

REACTIONS (20)
  - Suspected COVID-19 [Recovering/Resolving]
  - Headache [Recovering/Resolving]
  - Dyspnoea [Recovering/Resolving]
  - Pyrexia [Recovering/Resolving]
  - Pain [Recovering/Resolving]
  - Fatigue [Recovering/Resolving]
  - Cough [Unknown]
  - Pneumonia [Recovering/Resolving]
  - Pruritus [Unknown]
  - Skin disorder [Unknown]
  - Oropharyngeal pain [Not Recovered/Not Resolved]
  - Dry skin [Unknown]
  - Depression [Unknown]
  - Throat irritation [Not Recovered/Not Resolved]
  - Feeling abnormal [Unknown]
  - Fall [Unknown]
  - Depressed mood [Unknown]
  - Influenza [Not Recovered/Not Resolved]
  - Red blood cell sedimentation rate increased [Not Recovered/Not Resolved]
  - Product use in unapproved indication [Unknown]

NARRATIVE: CASE EVENT DATE: 20200601
